FAERS Safety Report 15809243 (Version 1)
Quarter: 2019Q1

REPORT INFORMATION
  Report Type: Spontaneous
  Country: US (occurrence: US)
  Receive Date: 20190110
  Receipt Date: 20190110
  Transmission Date: 20190417
  Serious: No
  Sender: FDA-Public Use
  Company Number: US-ASTRAZENECA-2018SF69274

PATIENT
  Sex: Female

DRUGS (1)
  1. FASLODEX [Suspect]
     Active Substance: FULVESTRANT
     Dosage: UNKNOWN
     Route: 030

REACTIONS (4)
  - Scar [Not Recovered/Not Resolved]
  - Injection site extravasation [Not Recovered/Not Resolved]
  - Product use issue [Not Recovered/Not Resolved]
  - Incorrect dose administered [Not Recovered/Not Resolved]
